FAERS Safety Report 6417442-5 (Version None)
Quarter: 2009Q4

REPORT INFORMATION
  Report Type: 
  Country: None (occurrence: None)
  Receive Date: 20091026
  Receipt Date: 20091014
  Transmission Date: 20100525
  Serious: Yes (Other)
  Sender: FDA-Public Use
  Company Number: SPV1-2009-02012

PATIENT
  Sex: Female

DRUGS (1)
  1. ANAGRELIDE HCL [Suspect]
     Indication: DRUG USE FOR UNKNOWN INDICATION
     Dosage: ORAL
     Route: 048
     Dates: start: 20060101

REACTIONS (2)
  - TEMPORAL ARTERITIS [None]
  - VISUAL IMPAIRMENT [None]
